FAERS Safety Report 15724562 (Version 5)
Quarter: 2019Q1

REPORT INFORMATION
  Report Type: Report from Study
  Country: CA (occurrence: CA)
  Receive Date: 20181214
  Receipt Date: 20190308
  Transmission Date: 20190417
  Serious: Yes (Death, Life-Threatening, Hospitalization)
  Sender: FDA-Public Use
  Company Number: CA-TESAROUBC-2018-TSO2442-CA

PATIENT

DRUGS (28)
  1. NICODERM CQ [Concomitant]
     Active Substance: NICOTINE
     Indication: SMOKING CESSATION THERAPY
     Dosage: 7 MG, QD
     Route: 062
     Dates: start: 20180207
  2. MAGNESIUM [Concomitant]
     Active Substance: MAGNESIUM
     Indication: SUPPLEMENTATION THERAPY
     Dosage: 250 MG, BID
     Route: 048
     Dates: start: 20180129
  3. METFORMIN [Concomitant]
     Active Substance: METFORMIN HYDROCHLORIDE
     Indication: TYPE 2 DIABETES MELLITUS
     Dosage: 500 MG, QD
     Dates: start: 20180117
  4. BENADRYL [Concomitant]
     Active Substance: DIPHENHYDRAMINE HYDROCHLORIDE
     Indication: IODINE ALLERGY
     Dosage: 50 MG, 1HR BEFORE
     Route: 048
     Dates: start: 20180220
  5. PROCHLORAZINE [Concomitant]
     Indication: PROPHYLAXIS OF NAUSEA AND VOMITING
     Dosage: 10 MG, Q4-6H PRN
     Route: 048
     Dates: start: 20180120, end: 20180301
  6. MCAL [Concomitant]
     Indication: SUPPLEMENTATION THERAPY
     Dosage: 500MG-800 IU
     Route: 048
     Dates: start: 20180216
  7. ATIVAN [Concomitant]
     Active Substance: LORAZEPAM
     Indication: ANXIETY
     Dosage: 1 MG, QHS
     Dates: start: 20180207
  8. MAGIC MOUTHWASH [Concomitant]
     Active Substance: DIPHENHYDRAMINE HYDROCHLORIDE\LIDOCAINE HYDROCHLORIDE\NYSTATIN
     Indication: ORAL PAIN
  9. ATORVASTATIN TEVA [Concomitant]
     Active Substance: ATORVASTATIN
     Indication: DYSLIPIDAEMIA
     Dosage: 10 MG, QHS
     Route: 048
     Dates: start: 20171201
  10. BENADRYL [Concomitant]
     Active Substance: DIPHENHYDRAMINE HYDROCHLORIDE
     Indication: FLUSHING
  11. LAX-A-DAY [Concomitant]
     Indication: PROPHYLAXIS
     Dosage: 17 G, QD
     Route: 048
     Dates: start: 20181130
  12. FILGRASTIM [Concomitant]
     Active Substance: FILGRASTIM
     Indication: NEUTROPENIA
     Dosage: 300 ?G, QD
     Route: 058
     Dates: start: 20181209
  13. NIRAPARIB [Suspect]
     Active Substance: NIRAPARIB
     Indication: OVARIAN CANCER
     Dosage: 300 MG, UNK
     Route: 048
     Dates: start: 20180227, end: 20180320
  14. PROCHLORAZINE [Concomitant]
     Indication: NAUSEA
     Dosage: 10 MG, Q4-6 HR PRN
     Route: 048
     Dates: start: 20180301
  15. MAGIC MOUTHWASH [Concomitant]
     Active Substance: DIPHENHYDRAMINE HYDROCHLORIDE\LIDOCAINE HYDROCHLORIDE\NYSTATIN
     Indication: SWOLLEN TONGUE
     Dosage: 10 ML, QID PRN
     Route: 048
     Dates: start: 20180824
  16. PANTOLOC [Concomitant]
     Active Substance: PANTOPRAZOLE SODIUM
     Indication: PROPHYLAXIS
     Dosage: 40 MG, QD
     Route: 048
     Dates: start: 20180731
  17. COLACE [Concomitant]
     Active Substance: DOCUSATE SODIUM
     Indication: PROPHYLAXIS
     Dosage: 100 MG, BID
     Route: 048
     Dates: start: 20181130
  18. ZOFRAN [Concomitant]
     Active Substance: ONDANSETRON HYDROCHLORIDE
     Indication: NAUSEA
     Dosage: 4 MG, TID
     Route: 048
     Dates: start: 20181130, end: 20181207
  19. DEXAMETHASONE. [Concomitant]
     Active Substance: DEXAMETHASONE
     Indication: SMALL INTESTINAL OBSTRUCTION
     Dosage: 8 UNK, BID
     Dates: start: 20181207
  20. NIRAPARIB [Suspect]
     Active Substance: NIRAPARIB
     Dosage: 200 MG, UNK
     Route: 048
     Dates: start: 20180403, end: 20181206
  21. TEVA TELMISARTAN [Concomitant]
     Active Substance: TELMISARTAN
     Indication: HYPERTENSION
     Dosage: 80 MG, QD
     Route: 048
     Dates: start: 20180216
  22. BETAMETHASONE DIPROPIONATE W/SALICYLIC ACID [Concomitant]
     Indication: PRURITUS
     Dosage: OINT, BID
     Route: 061
     Dates: start: 201711, end: 20180314
  23. PANTOLOC [Concomitant]
     Active Substance: PANTOPRAZOLE SODIUM
     Indication: GASTROOESOPHAGEAL REFLUX DISEASE
     Dosage: 40 MG, QD
     Route: 048
     Dates: start: 20180522, end: 20180630
  24. MAGIC MOUTHWASH [Concomitant]
     Active Substance: DIPHENHYDRAMINE HYDROCHLORIDE\LIDOCAINE HYDROCHLORIDE\NYSTATIN
     Indication: STOMATITIS
     Dosage: 10 ML, QID PRN
     Route: 048
     Dates: start: 20180111, end: 20180218
  25. BENADRYL [Concomitant]
     Active Substance: DIPHENHYDRAMINE HYDROCHLORIDE
     Indication: URTICARIA
     Dosage: OINT, TID PRN
     Route: 061
     Dates: start: 20180301
  26. BENADRYL [Concomitant]
     Active Substance: DIPHENHYDRAMINE HYDROCHLORIDE
     Indication: SKIN REACTION
     Dosage: 50 MG, ONCE
     Route: 048
     Dates: start: 20181010, end: 20181010
  27. PREDNISONE. [Concomitant]
     Active Substance: PREDNISONE
     Indication: IODINE ALLERGY
     Dosage: 50 MG, 13 HRS 7 HR + 1 HR BEFORE PROCEDURE
     Dates: start: 20180219
  28. SENNOSIDE [Concomitant]
     Active Substance: SENNOSIDES
     Indication: CONSTIPATION
     Dosage: 8.6 MG, QHS PRN
     Route: 048
     Dates: start: 20180109

REACTIONS (1)
  - Myelodysplastic syndrome [Not Recovered/Not Resolved]

NARRATIVE: CASE EVENT DATE: 20181207
